FAERS Safety Report 4767893-X (Version None)
Quarter: 2005Q3

REPORT INFORMATION
  Report Type: 
  Country: None (occurrence: None)
  Receive Date: 20050912
  Receipt Date: 20050826
  Transmission Date: 20060218
  Serious: Yes (Hospitalization)
  Sender: FDA-Public Use
  Company Number: DSA_60508_2005

PATIENT
  Age: 69 Year
  Sex: Male
  Weight: 83.4619 kg

DRUGS (2)
  1. MYSOLINE [Suspect]
     Dosage: DF ONCE; PO
     Route: 048
     Dates: start: 20050825, end: 20050825
  2. MYSOLINE [Suspect]
     Indication: CONVULSION
     Dosage: DF UNK; PO
     Route: 048

REACTIONS (2)
  - MENTAL STATUS CHANGES [None]
  - OVERDOSE [None]
